FAERS Safety Report 11632750 (Version 1)
Quarter: 2015Q4

REPORT INFORMATION
  Report Type: Spontaneous
  Country: DK (occurrence: DE)
  Receive Date: 20151015
  Receipt Date: 20151015
  Transmission Date: 20160304
  Serious: Yes (Hospitalization, Other)
  Sender: FDA-Public Use
  Company Number: DE-FRI-1000080191

PATIENT
  Age: 0 Year
  Sex: Male
  Weight: 3.53 kg

DRUGS (1)
  1. CITALOPRAM [Suspect]
     Active Substance: CITALOPRAM HYDROBROMIDE
     Indication: DEPRESSION
     Dosage: 20 MILLIGRAM
     Route: 064
     Dates: start: 20141013, end: 20150720

REACTIONS (4)
  - Agitation neonatal [Recovered/Resolved]
  - Diarrhoea neonatal [Recovered/Resolved]
  - Infantile vomiting [Recovered/Resolved]
  - Foetal exposure during pregnancy [Recovered/Resolved]

NARRATIVE: CASE EVENT DATE: 20141013
